FAERS Safety Report 6303545-2 (Version None)
Quarter: 2009Q3

REPORT INFORMATION
  Report Type: 
  Country: None (occurrence: None)
  Receive Date: 20090807
  Receipt Date: 20090807
  Transmission Date: 20100115
  Serious: No
  Sender: FDA-Public Use
  Company Number: None

PATIENT
  Age: 32 Year
  Sex: Female
  Weight: 84.8226 kg

DRUGS (3)
  1. REMICADE [Suspect]
     Indication: RHEUMATOID ARTHRITIS
     Dosage: 300MG Q 8 WKS, IV
     Route: 042
  2. LODINE [Concomitant]
  3. ADOXA [Concomitant]

REACTIONS (2)
  - PRURITUS [None]
  - SWELLING FACE [None]
